FAERS Safety Report 16080990 (Version 1)
Quarter: 2019Q1

REPORT INFORMATION
  Report Type: Spontaneous
  Country: US (occurrence: US)
  Receive Date: 20190316
  Receipt Date: 20190316
  Transmission Date: 20190418
  Serious: No
  Sender: FDA-Public Use
  Company Number: US-JNJFOC-20190214637

PATIENT
  Age: 31 Year
  Sex: Female

DRUGS (2)
  1. TYLENOL REGULAR STRENGTH [Suspect]
     Active Substance: ACETAMINOPHEN
     Indication: HEADACHE
     Route: 048
     Dates: start: 20190209
  2. TYLENOL REGULAR STRENGTH [Suspect]
     Active Substance: ACETAMINOPHEN
     Indication: OROPHARYNGEAL PAIN
     Route: 048
     Dates: start: 20190209

REACTIONS (4)
  - Exposure during pregnancy [Unknown]
  - Incorrect dose administered [Unknown]
  - Product use in unapproved indication [Unknown]
  - Product container seal issue [Unknown]

NARRATIVE: CASE EVENT DATE: 20190209
